FAERS Safety Report 5098464-6 (Version None)
Quarter: 2006Q3

REPORT INFORMATION
  Report Type: 
  Country: None (occurrence: None)
  Receive Date: 20060906
  Receipt Date: 20060124
  Transmission Date: 20061208
  Serious: No
  Sender: FDA-Public Use
  Company Number: US-GLAXOSMITHKLINE-A0590739A

PATIENT
  Age: 52 Year
  Sex: Male

DRUGS (4)
  1. REQUIP [Suspect]
     Indication: RESTLESS LEGS SYNDROME
     Dosage: 2MG TWICE PER DAY
     Route: 048
     Dates: start: 20060120
  2. CHOLESTEROL [Concomitant]
  3. HYPERTENSION MED [Concomitant]
  4. MIRAPEX [Concomitant]

REACTIONS (3)
  - BLOOD PRESSURE DECREASED [None]
  - INSOMNIA [None]
  - RESTLESS LEGS SYNDROME [None]
